FAERS Safety Report 4452495-5 (Version None)
Quarter: 2004Q3

REPORT INFORMATION
  Report Type: 
  Country: None (occurrence: None)
  Receive Date: 20040916
  Receipt Date: 20040831
  Transmission Date: 20050211
  Serious: Yes (Life-Threatening, Hospitalization)
  Sender: FDA-Public Use
  Company Number: DSA_24887_2004

PATIENT
  Age: 75 Year
  Sex: Female

DRUGS (4)
  1. TEVETEN [Suspect]
     Indication: HYPERTENSION
     Dosage: 600 MG Q DAY PO
     Route: 048
     Dates: start: 20031219, end: 20040319
  2. CYRESS [Concomitant]
  3. LESCOL [Concomitant]
  4. DIURETICS [Concomitant]

REACTIONS (4)
  - FEELING ABNORMAL [None]
  - HYPERTENSIVE CRISIS [None]
  - NERVOUSNESS [None]
  - REFUSAL OF TREATMENT BY PATIENT [None]
